FAERS Safety Report 8396488 (Version 4)
Quarter: 2013Q2

REPORT INFORMATION
  Report Type: Spontaneous
  Country: US (occurrence: US)
  Receive Date: 20120208
  Receipt Date: 20130405
  Transmission Date: 20140414
  Serious: Yes (Life-Threatening, Hospitalization, Other)
  Sender: FDA-Public Use
  Company Number: US-ASTRAZENECA-2012SE02939

PATIENT
  Age: 69 Year
  Sex: Female

DRUGS (1)
  1. CRESTOR [Suspect]
     Route: 048

REACTIONS (11)
  - Aortic aneurysm rupture [Recovering/Resolving]
  - Aortic aneurysm [Unknown]
  - Blood pressure decreased [Unknown]
  - Asthenia [Unknown]
  - Cardiac infection [Unknown]
  - Gait disturbance [Unknown]
  - Balance disorder [Unknown]
  - Fall [Unknown]
  - Feeling abnormal [Unknown]
  - Asthenia [Unknown]
  - Asthenia [Unknown]
